FAERS Safety Report 18653148 (Version 2)
Quarter: 2021Q1

REPORT INFORMATION
  Report Type: Report from Study
  Country: None (occurrence: FR)
  Receive Date: 20201222
  Receipt Date: 20210302
  Transmission Date: 20210419
  Serious: Yes (Death, Hospitalization, Other)
  Sender: FDA-Public Use
  Company Number: FR-ABBVIE-20K-056-3699976-00

PATIENT
  Age: 54 Year
  Sex: Male
  Weight: 90 kg

DRUGS (2)
  1. HUMIRA [Suspect]
     Active Substance: ADALIMUMAB
     Indication: PSORIASIS
     Route: 058
     Dates: start: 202006
  2. HUMIRA [Suspect]
     Active Substance: ADALIMUMAB
     Indication: RHEUMATOID ARTHRITIS
     Route: 058
     Dates: end: 2018

REACTIONS (8)
  - Hepatic cirrhosis [Fatal]
  - Impaired healing [Unknown]
  - General physical health deterioration [Fatal]
  - Renal failure [Fatal]
  - Fracture [Recovering/Resolving]
  - Infection [Recovering/Resolving]
  - COVID-19 [Fatal]
  - Patient uncooperative [Unknown]

NARRATIVE: CASE EVENT DATE: 202010
